FAERS Safety Report 13752670 (Version 2)
Quarter: 2018Q1

REPORT INFORMATION
  Report Type: Spontaneous
  Country: US (occurrence: US)
  Receive Date: 20170713
  Receipt Date: 20180109
  Transmission Date: 20180508
  Serious: No
  Sender: FDA-Public Use
  Company Number: US-ALEXION PHARMACEUTICALS INC.-A201707787

PATIENT
  Age: 40 Year
  Sex: Female

DRUGS (1)
  1. SOLIRIS [Suspect]
     Active Substance: ECULIZUMAB
     Indication: PAROXYSMAL NOCTURNAL HAEMOGLOBINURIA
     Route: 042

REACTIONS (14)
  - Blood lactate dehydrogenase increased [Unknown]
  - Haemoglobin decreased [Not Recovered/Not Resolved]
  - Reticulocyte count increased [Not Recovered/Not Resolved]
  - Albumin globulin ratio decreased [Unknown]
  - Mean cell volume increased [Unknown]
  - Mean platelet volume decreased [Unknown]
  - Aspartate aminotransferase increased [Unknown]
  - Red cell distribution width increased [Unknown]
  - Haematocrit decreased [Unknown]
  - Anion gap decreased [Unknown]
  - White blood cell count decreased [Not Recovered/Not Resolved]
  - Red blood cell count decreased [Not Recovered/Not Resolved]
  - Platelet count decreased [Unknown]
  - Mean cell haemoglobin increased [Unknown]

NARRATIVE: CASE EVENT DATE: 20170701
